FAERS Safety Report 12409291 (Version 6)
Quarter: 2016Q3

REPORT INFORMATION
  Report Type: Spontaneous
  Country: JP (occurrence: JP)
  Receive Date: 20160526
  Receipt Date: 20160728
  Transmission Date: 20161109
  Serious: Yes (Other)
  Sender: FDA-Public Use
  Company Number: JP-PFIZER INC-2016273889

PATIENT
  Age: 30 Year
  Sex: Male

DRUGS (11)
  1. CRAVIT [Suspect]
     Active Substance: LEVOFLOXACIN
     Indication: PSEUDOMONAS INFECTION
     Dosage: UNK
     Route: 041
  2. FUNGUARD [Suspect]
     Active Substance: MICAFUNGIN SODIUM
     Indication: SKIN CANDIDA
     Dosage: UNK
     Route: 041
     Dates: start: 20141204, end: 20141205
  3. ISODINE [Concomitant]
     Active Substance: POVIDONE-IODINE
     Dosage: UNK
  4. PRODIF [Suspect]
     Active Substance: FOSFLUCONAZOLE
     Indication: SKIN CANDIDA
     Dosage: UNK
     Route: 042
     Dates: start: 20141206, end: 20150105
  5. MICAFUNGIN [Concomitant]
     Active Substance: MICAFUNGIN
     Indication: SKIN CANDIDA
     Dosage: UNK
  6. VANCOMYCIN HCL [Suspect]
     Active Substance: VANCOMYCIN HYDROCHLORIDE
     Indication: STAPHYLOCOCCAL INFECTION
     Dosage: UNK
     Dates: start: 20141103
  7. FLUCONAZOLE. [Suspect]
     Active Substance: FLUCONAZOLE
  8. AMBISOME [Concomitant]
     Active Substance: AMPHOTERICIN B
     Indication: ASPERGILLUS INFECTION
     Dosage: UNK
  9. ZOSYN [Suspect]
     Active Substance: PIPERACILLIN SODIUM\TAZOBACTAM SODIUM
     Indication: PSEUDOMONAS INFECTION
     Dosage: 4.5 G, 4X/DAY
     Route: 041
     Dates: start: 20141103, end: 20141127
  10. MEROPENEM. [Suspect]
     Active Substance: MEROPENEM
     Indication: PSEUDOMONAS INFECTION
     Dosage: UNK
  11. AMPHOTERICIN B. [Concomitant]
     Active Substance: AMPHOTERICIN B
     Indication: SKIN CANDIDA
     Dosage: UNK

REACTIONS (3)
  - Aspergillus infection [Unknown]
  - Candida infection [Unknown]
  - Fungal skin infection [Unknown]
